FAERS Safety Report 11632536 (Version 2)
Quarter: 2015Q4

REPORT INFORMATION
  Report Type: Spontaneous
  Country: US (occurrence: US)
  Receive Date: 20151015
  Receipt Date: 20151201
  Transmission Date: 20160304
  Serious: Yes (Hospitalization)
  Sender: FDA-Public Use
  Company Number: CHPA2015US011807

PATIENT
  Age: 65 Year
  Sex: Male

DRUGS (4)
  1. MECLIZINE [Suspect]
     Active Substance: MECLIZINE\MECLIZINE HYDROCHLORIDE
     Indication: DIZZINESS
     Dosage: UNK UNK, TID
     Route: 065
     Dates: start: 2013
  2. TRANSDERM SCOP [Suspect]
     Active Substance: SCOPOLAMINE
     Indication: VERTIGO
     Dosage: UNK UNK, PRN
     Route: 062
     Dates: start: 2013
  3. MECLIZINE [Suspect]
     Active Substance: MECLIZINE\MECLIZINE HYDROCHLORIDE
     Indication: VOMITING
  4. TRANSDERM SCOP [Suspect]
     Active Substance: SCOPOLAMINE
     Dosage: UNK UNK, PRN
     Route: 062

REACTIONS (8)
  - Vomiting [Recovering/Resolving]
  - Drug ineffective [Unknown]
  - Decreased appetite [Recovered/Resolved]
  - Vertigo [Recovering/Resolving]
  - Nausea [Unknown]
  - Vitamin D deficiency [Recovering/Resolving]
  - Balance disorder [Recovering/Resolving]
  - Incorrect drug administration duration [Unknown]

NARRATIVE: CASE EVENT DATE: 20150817
